FAERS Safety Report 10954275 (Version 1)
Quarter: 2015Q1

REPORT INFORMATION
  Report Type: Spontaneous
  Country: NL (occurrence: NL)
  Receive Date: 20150325
  Receipt Date: 20150325
  Transmission Date: 20150721
  Serious: Yes (Other)
  Sender: FDA-Public Use
  Company Number: NL-WATSON-2015-06109

PATIENT
  Age: 78 Year
  Sex: Female
  Weight: 70 kg

DRUGS (6)
  1. FLUTICASONE PROPIONATE. [Concomitant]
     Active Substance: FLUTICASONE PROPIONATE
     Indication: PRODUCT USED FOR UNKNOWN INDICATION
     Dosage: 2 DF, DAILY - 1D2D
     Route: 045
  2. HYDROCHLOORTHIAZIDE [Concomitant]
     Active Substance: HYDROCHLOROTHIAZIDE
     Indication: PRODUCT USED FOR UNKNOWN INDICATION
     Dosage: 25 MG, DAILY
     Route: 048
  3. OMEPRAZOL                          /00661201/ [Concomitant]
     Active Substance: OMEPRAZOLE
     Indication: PRODUCT USED FOR UNKNOWN INDICATION
     Dosage: 1 DF, DAILY - 1D1-2C
     Route: 048
  4. ENALAPRIL MALEATE. [Concomitant]
     Active Substance: ENALAPRIL MALEATE
     Indication: PRODUCT USED FOR UNKNOWN INDICATION
     Dosage: 5 MG, DAILY - 1DD1
     Route: 048
  5. MINOCYCLINE [Suspect]
     Active Substance: MINOCYCLINE\MINOCYCLINE HYDROCHLORIDE
     Indication: DERMATITIS
     Dosage: 50 MG, DAILY
     Route: 048
     Dates: start: 20150129, end: 20150212
  6. PROTOPIC [Interacting]
     Active Substance: TACROLIMUS
     Indication: ECZEMA
     Dosage: 1 DF, DAILY
     Route: 003
     Dates: start: 2013, end: 20150212

REACTIONS (3)
  - Cholestasis [Recovering/Resolving]
  - Drug interaction [Recovering/Resolving]
  - Hepatic function abnormal [Recovering/Resolving]

NARRATIVE: CASE EVENT DATE: 20150206
